FAERS Safety Report 23058704 (Version 7)
Quarter: 2024Q4

REPORT INFORMATION
  Report Type: Spontaneous
  Country: US (occurrence: US)
  Receive Date: 20231012
  Receipt Date: 20241206
  Transmission Date: 20250115
  Serious: Yes (Hospitalization, Other)
  Sender: PFIZER
  Company Number: US-PFIZER INC-PV202300164754

PATIENT
  Age: 64 Year
  Sex: Female
  Weight: 58.503 kg

DRUGS (10)
  1. BEVACIZUMAB [Suspect]
     Active Substance: BEVACIZUMAB
     Indication: Colon cancer
     Dosage: 5 MG/KG
     Route: 042
     Dates: start: 20230525
  2. BEVACIZUMAB [Suspect]
     Active Substance: BEVACIZUMAB
     Indication: Metastatic neoplasm
  3. ZIRABEV [Suspect]
     Active Substance: BEVACIZUMAB-BVZR
     Indication: Colon cancer
     Dosage: 400 MG, (PIGGYBACK ONCE, ADMIN OVER: 30 MINUTES TO 30 MINUTES)
     Route: 041
     Dates: start: 20240116, end: 20240116
  4. ZIRABEV [Suspect]
     Active Substance: BEVACIZUMAB-BVZR
     Indication: Metastatic neoplasm
  5. OXALIPLATIN [Suspect]
     Active Substance: OXALIPLATIN
     Indication: Colon cancer
     Dosage: UNK
  6. OXALIPLATIN [Suspect]
     Active Substance: OXALIPLATIN
     Indication: Metastatic neoplasm
  7. FLUOROURACIL [Suspect]
     Active Substance: FLUOROURACIL
     Indication: Colon cancer
     Dosage: UNK
  8. FLUOROURACIL [Suspect]
     Active Substance: FLUOROURACIL
     Indication: Metastatic neoplasm
  9. LEUCOVORIN [Suspect]
     Active Substance: LEUCOVORIN\LEUCOVORIN CALCIUM
     Indication: Colon cancer
     Dosage: UNK
  10. LEUCOVORIN [Suspect]
     Active Substance: LEUCOVORIN\LEUCOVORIN CALCIUM
     Indication: Metastatic neoplasm

REACTIONS (3)
  - Abdominal pain [Recovering/Resolving]
  - Haematochezia [Unknown]
  - Abdominal pain upper [Unknown]
